FAERS Safety Report 5254128-7 (Version None)
Quarter: 2007Q1

REPORT INFORMATION
  Report Type: 
  Country: None (occurrence: None)
  Receive Date: 20070302
  Receipt Date: 20070216
  Transmission Date: 20070707
  Serious: Yes (Hospitalization)
  Sender: FDA-Public Use
  Company Number: CL-AMGEN-US211457

PATIENT
  Sex: Female

DRUGS (4)
  1. PANITUMUMAB [Suspect]
     Indication: COLORECTAL CANCER
     Route: 042
     Dates: start: 20070103
  2. OXALIPLATIN [Concomitant]
     Route: 042
  3. FLUOROURACIL [Concomitant]
     Route: 042
  4. LEUCOVORIN CALCIUM [Concomitant]
     Route: 042

REACTIONS (2)
  - CELLULITIS [None]
  - SKIN INFECTION [None]
